FAERS Safety Report 26049804 (Version 1)
Quarter: 2025Q4

REPORT INFORMATION
  Report Type: Spontaneous
  Country: US (occurrence: US)
  Receive Date: 20251115
  Receipt Date: 20251115
  Transmission Date: 20260118
  Serious: Yes (Life-Threatening, Hospitalization, Other)
  Sender: GLENMARK
  Company Number: US-GLENMARK PHARMACEUTICALS-2025GMK105593

PATIENT
  Age: 55 Year
  Sex: Female

DRUGS (1)
  1. DILTIAZEM HYDROCHLORIDE [Suspect]
     Active Substance: DILTIAZEM HYDROCHLORIDE
     Indication: Product used for unknown indication
     Dosage: 6 GRAM, SINGLE (INGESTION OF 6.0 GRAMS EXTENDED-RELEASE DILTIAZEM)
     Route: 048

REACTIONS (6)
  - Distributive shock [Recovered/Resolved]
  - Pneumonia aspiration [Recovered/Resolved]
  - Encephalopathy [Unknown]
  - Cardiac arrest [Recovered/Resolved]
  - Tachyarrhythmia [Recovered/Resolved]
  - Overdose [Unknown]
